FAERS Safety Report 5072721-1 (Version None)
Quarter: 2006Q3

REPORT INFORMATION
  Report Type: 
  Country: None (occurrence: None)
  Receive Date: 20060807
  Receipt Date: 20060719
  Transmission Date: 20061208
  Serious: Yes (Other)
  Sender: FDA-Public Use
  Company Number: GR-SANOFI-SYNTHELABO-F01200601701

PATIENT
  Age: 52 Year
  Sex: Female

DRUGS (5)
  1. APREPITANT [Concomitant]
     Dosage: 125-80-80
     Route: 048
  2. ONDANSETRON HCL [Concomitant]
     Route: 042
  3. LEUCOVORIN CALCIUM [Suspect]
     Route: 041
     Dates: start: 20060321, end: 20060322
  4. FLUOROURACIL [Suspect]
     Route: 041
     Dates: start: 20060321, end: 20060322
  5. ELOXATIN [Suspect]
     Indication: COLON CANCER STAGE II
     Route: 041
     Dates: start: 20060321, end: 20060321

REACTIONS (7)
  - LYMPH NODE PAIN [None]
  - LYMPHADENOPATHY [None]
  - MUSCULOSKELETAL PAIN [None]
  - NECK PAIN [None]
  - OCULAR HYPERAEMIA [None]
  - PYREXIA [None]
  - URTICARIA [None]
